FAERS Safety Report 7817940-3 (Version None)
Quarter: 2011Q4

REPORT INFORMATION
  Report Type: 
  Country: None (occurrence: None)
  Receive Date: 20111017
  Receipt Date: 20111011
  Transmission Date: 20120403
  Serious: Yes (Other)
  Sender: FDA-Public Use
  Company Number: US-GLAXOSMITHKLINE-A0948861A

PATIENT
  Age: 46 Year
  Sex: Male
  Weight: 112.5 kg

DRUGS (4)
  1. FLOLAN [Suspect]
     Indication: PULMONARY ARTERIAL HYPERTENSION
     Dosage: 4NGKM UNKNOWN
     Route: 042
     Dates: start: 20110803
  2. FUROSEMIDE [Concomitant]
  3. SPIRONOLACTONE [Concomitant]
  4. ADCIRCA [Concomitant]

REACTIONS (2)
  - CYANOSIS [None]
  - EYE SWELLING [None]
